FAERS Safety Report 13207705 (Version 1)
Quarter: 2017Q1

REPORT INFORMATION
  Report Type: Spontaneous
  Country: US (occurrence: US)
  Receive Date: 20170208
  Receipt Date: 20170208
  Transmission Date: 20170428
  Serious: No
  Sender: FDA-Public Use
  Company Number: US-AMGEN-USASP2016146048

PATIENT
  Age: 62 Year
  Sex: Female

DRUGS (2)
  1. NEULASTA [Suspect]
     Active Substance: PEGFILGRASTIM
     Dosage: UNK, 2ND OBI
     Route: 065
  2. NEULASTA [Suspect]
     Active Substance: PEGFILGRASTIM
     Indication: PRODUCT USED FOR UNKNOWN INDICATION
     Dosage: UNK 1ST OBI
     Route: 065

REACTIONS (5)
  - Malaise [Unknown]
  - Circumstance or information capable of leading to medication error [Unknown]
  - Diarrhoea [Unknown]
  - Vomiting [Unknown]
  - Application site discomfort [Unknown]
